FAERS Safety Report 19150665 (Version 1)
Quarter: 2021Q2

REPORT INFORMATION
  Report Type: Report from Study
  Country: DE (occurrence: DE)
  Receive Date: 20210418
  Receipt Date: 20210418
  Transmission Date: 20210717
  Serious: Yes (Death, Hospitalization)
  Sender: FDA-Public Use
  Company Number: DE-BEH-2021129906

PATIENT
  Age: 70 Year
  Sex: Male
  Weight: 60 kg

DRUGS (14)
  1. PRIVIGEN [Suspect]
     Active Substance: HUMAN IMMUNOGLOBULIN G
     Indication: SECONDARY IMMUNODEFICIENCY
     Dosage: 10 GRAM, TOT
     Route: 042
     Dates: start: 20201005, end: 20201005
  2. L THYROXINE [Concomitant]
     Active Substance: LEVOTHYROXINE SODIUM
  3. PRIVIGEN [Suspect]
     Active Substance: HUMAN IMMUNOGLOBULIN G
     Dosage: 10 GRAM, TOT
     Route: 042
     Dates: start: 20201116, end: 20201116
  4. IMBRUVICA [Concomitant]
     Active Substance: IBRUTINIB
  5. ASA [Concomitant]
     Active Substance: ASPIRIN
     Dosage: UNK, QD
     Route: 065
  6. PANTOZOL [Concomitant]
     Active Substance: PANTOPRAZOLE SODIUM
  7. BISOPROLOL [Concomitant]
     Active Substance: BISOPROLOL
  8. SIMVASTATIN. [Concomitant]
     Active Substance: SIMVASTATIN
  9. PRIVIGEN [Suspect]
     Active Substance: HUMAN IMMUNOGLOBULIN G
     Indication: CHRONIC LYMPHOCYTIC LEUKAEMIA
     Dosage: 10 GRAM, TOT
     Route: 042
     Dates: start: 20200914, end: 20200914
  10. PRIVIGEN [Suspect]
     Active Substance: HUMAN IMMUNOGLOBULIN G
     Indication: INFECTION
     Dosage: 10 GRAM, TOT
     Route: 042
     Dates: start: 20201026, end: 20201026
  11. AMLODIPINE [Concomitant]
     Active Substance: AMLODIPINE BESYLATE
  12. TOREM [TORASEMIDE] [Concomitant]
     Active Substance: TORSEMIDE
  13. RAMIPRIL. [Concomitant]
     Active Substance: RAMIPRIL
  14. ELIQUIS [Concomitant]
     Active Substance: APIXABAN

REACTIONS (4)
  - Acute kidney injury [Fatal]
  - Septic shock [Fatal]
  - Pneumococcal sepsis [Fatal]
  - Respiratory failure [Fatal]

NARRATIVE: CASE EVENT DATE: 20201124
